FAERS Safety Report 18146846 (Version 3)
Quarter: 2020Q4

REPORT INFORMATION
  Report Type: Report from Study
  Country: CA (occurrence: CA)
  Receive Date: 20200813
  Receipt Date: 20201216
  Transmission Date: 20210113
  Serious: Yes (Hospitalization)
  Sender: FDA-Public Use
  Company Number: CA-JNJFOC-20200808079

PATIENT
  Age: 51 Year
  Sex: Female

DRUGS (2)
  1. STELARA [Suspect]
     Active Substance: USTEKINUMAB
     Indication: CROHN^S DISEASE
     Dosage: ON 07-DEC-2020, THE PATIENT RECEIVED 8TH DOSE WITH 390 MG OF STELARA
     Route: 042
     Dates: start: 20170119
  2. STELARA [Suspect]
     Active Substance: USTEKINUMAB
     Dosage: LAST DOSE ON 27/SEP/2020?THE PATIENT HAD 8TH INJECTION
     Route: 058
     Dates: start: 20200703

REACTIONS (3)
  - Crohn^s disease [Recovering/Resolving]
  - Incontinence [Not Recovered/Not Resolved]
  - Off label use [Unknown]

NARRATIVE: CASE EVENT DATE: 20200804
